FAERS Safety Report 8161403-5 (Version None)
Quarter: 2012Q1

REPORT INFORMATION
  Report Type: 
  Country: None (occurrence: None)
  Receive Date: 20120224
  Receipt Date: 20120214
  Transmission Date: 20120608
  Serious: Yes (Hospitalization)
  Sender: FDA-Public Use
  Company Number: US-JNJFOC-20120207670

PATIENT
  Sex: Male
  Weight: 124.29 kg

DRUGS (9)
  1. REMICADE [Suspect]
     Route: 042
     Dates: start: 20060101, end: 20100101
  2. HUMIRA [Suspect]
     Indication: PRODUCT USED FOR UNKNOWN INDICATION
     Route: 065
     Dates: start: 20100101
  3. LOSARTAN POTASSIUM [Concomitant]
     Indication: BLOOD PRESSURE
     Route: 048
  4. NEXIUM [Concomitant]
     Indication: GASTROOESOPHAGEAL REFLUX DISEASE
     Route: 048
     Dates: start: 20060101
  5. CLONAZEPAM [Concomitant]
     Indication: NERVOUSNESS
     Route: 048
     Dates: start: 20050101
  6. PENTASA [Concomitant]
     Indication: CROHN'S DISEASE
     Route: 048
     Dates: start: 20040101
  7. REMICADE [Suspect]
     Indication: CROHN'S DISEASE
     Dosage: RESTARTED
     Route: 042
     Dates: start: 20110706
  8. LOPRESSOR [Concomitant]
     Indication: HYPERTENSION
     Route: 048
  9. DILTIAZEM HCL [Concomitant]
     Indication: BLOOD PRESSURE
     Route: 048

REACTIONS (13)
  - BLOOD MAGNESIUM DECREASED [None]
  - CROHN'S DISEASE [None]
  - SEPSIS [None]
  - CHOLECYSTECTOMY [None]
  - PNEUMONIA [None]
  - BACTERAEMIA [None]
  - DIARRHOEA [None]
  - HEPATIC CYST [None]
  - HYPOTENSION [None]
  - HYPERTENSION [None]
  - BLOOD POTASSIUM DECREASED [None]
  - PROSTATOMEGALY [None]
  - DEPRESSION [None]
